FAERS Safety Report 9909829 (Version 1)
Quarter: 2014Q1

REPORT INFORMATION
  Report Type: Spontaneous
  Country: IN (occurrence: IN)
  Receive Date: 20140219
  Receipt Date: 20140219
  Transmission Date: 20141002
  Serious: Yes (Other)
  Sender: FDA-Public Use
  Company Number: IN-B.I. PHARMACEUTICALS,INC./RIDGEFIELD-2014-BI-06707IG

PATIENT
  Age: 54 Year
  Sex: 0

DRUGS (1)
  1. TRAJENTA [Suspect]
     Indication: DIABETES MELLITUS

REACTIONS (1)
  - Pancreatitis [Unknown]
